FAERS Safety Report 7535759-8 (Version None)
Quarter: 2011Q2

REPORT INFORMATION
  Report Type: 
  Country: None (occurrence: None)
  Receive Date: 20110609
  Receipt Date: 20110328
  Transmission Date: 20111010
  Serious: No
  Sender: FDA-Public Use
  Company Number: US-KINGPHARMUSA00001-K201100350

PATIENT
  Age: 45 Year
  Sex: Female
  Weight: 81.633 kg

DRUGS (5)
  1. EMBEDA [Suspect]
     Dosage: 60 MG, QHS
     Route: 048
     Dates: start: 20100101
  2. VICOPROFEN [Concomitant]
     Indication: BREAKTHROUGH PAIN
     Dosage: UNK
  3. EMBEDA [Suspect]
     Indication: PAIN
     Dosage: 80 MG, QHS
     Route: 048
     Dates: end: 20110324
  4. TRAZODONE HCL [Concomitant]
     Dosage: UNK
  5. KLONOPIN [Concomitant]

REACTIONS (7)
  - FEELING ABNORMAL [None]
  - INSOMNIA [None]
  - FEELING COLD [None]
  - HEADACHE [None]
  - ABDOMINAL DISCOMFORT [None]
  - RESTLESS LEGS SYNDROME [None]
  - DRUG WITHDRAWAL SYNDROME [None]
